FAERS Safety Report 14145264 (Version 1)
Quarter: 2017Q4

REPORT INFORMATION
  Report Type: Report from Study
  Country: US (occurrence: US)
  Receive Date: 20171031
  Receipt Date: 20171031
  Transmission Date: 20180321
  Serious: Yes (Death, Other)
  Sender: FDA-Public Use
  Company Number: US-GILEAD-2017-0301798

PATIENT
  Age: 73 Year
  Sex: Female

DRUGS (12)
  1. ORENITRAM [Suspect]
     Active Substance: TREPROSTINIL
     Indication: PULMONARY HYPERTENSION
     Dosage: 5 MG, BID
     Route: 065
     Dates: start: 20151030
  2. POTASSIUM CHLORIDE. [Concomitant]
     Active Substance: POTASSIUM CHLORIDE
  3. GABAPENTIN. [Concomitant]
     Active Substance: GABAPENTIN
  4. NITROGLYCERIN. [Concomitant]
     Active Substance: NITROGLYCERIN
  5. SYMBICORT [Concomitant]
     Active Substance: BUDESONIDE\FORMOTEROL FUMARATE DIHYDRATE
  6. PREDNISONE. [Concomitant]
     Active Substance: PREDNISONE
  7. ULORIC [Concomitant]
     Active Substance: FEBUXOSTAT
  8. TORSEMIDE. [Concomitant]
     Active Substance: TORSEMIDE
  9. AMBRISENTAN [Suspect]
     Active Substance: AMBRISENTAN
     Indication: PULMONARY HYPERTENSION
     Dosage: 10 MG, QD
     Route: 065
     Dates: start: 20140107, end: 20171014
  10. FLECTOR                            /00372302/ [Concomitant]
     Active Substance: DICLOFENAC SODIUM
  11. METOPROLOL. [Concomitant]
     Active Substance: METOPROLOL
  12. VITAMIN D                          /00107901/ [Concomitant]
     Active Substance: ERGOCALCIFEROL

REACTIONS (3)
  - Pulse absent [Not Recovered/Not Resolved]
  - Death [Fatal]
  - Vascular graft [Unknown]

NARRATIVE: CASE EVENT DATE: 20171014
